FAERS Safety Report 8663303 (Version 2)
Quarter: 2012Q4

REPORT INFORMATION
  Report Type: Report from Study
  Country: AU (occurrence: AU)
  Receive Date: 20120713
  Receipt Date: 20121107
  Transmission Date: 20130627
  Serious: Yes (Other)
  Sender: FDA-Public Use
  Company Number: AU-ASTELLAS-2012US006102

PATIENT

DRUGS (3)
  1. ERLOTINIB TABLET [Suspect]
     Indication: COLORECTAL CANCER
     Dosage: 100 mg, UID/QD
     Route: 048
  2. CETUXIMAB [Suspect]
     Indication: COLORECTAL CANCER
     Dosage: 400 mg/m2, Unknown/D
     Route: 042
  3. CETUXIMAB [Suspect]
     Dosage: 250 mg/m2, Weekly
     Route: 042

REACTIONS (2)
  - Off label use [Unknown]
  - Pain [Unknown]
